FAERS Safety Report 14261695 (Version 7)
Quarter: 2018Q1

REPORT INFORMATION
  Report Type: Spontaneous
  Country: FR (occurrence: FR)
  Receive Date: 20171208
  Receipt Date: 20180309
  Transmission Date: 20180508
  Serious: Yes (Hospitalization, Other)
  Sender: FDA-Public Use
  Company Number: FR-AUROBINDO-AUR-APL-2015-05047

PATIENT
  Age: 34 Year
  Sex: Female

DRUGS (27)
  1. MORPHINE [Suspect]
     Active Substance: MORPHINE
     Indication: ANALGESIC THERAPY
     Dosage: 2 MG, UNK
     Route: 065
  2. ROPIVACAINE [Suspect]
     Active Substance: ROPIVACAINE
     Dosage: 20 MG, UNK
     Route: 008
  3. SUFENTANIL [Suspect]
     Active Substance: SUFENTANIL
     Indication: EPIDURAL ANALGESIA
     Dosage: 0.25 UNK, UNK
     Route: 065
  4. NEFOPAM [Concomitant]
     Active Substance: NEFOPAM
     Indication: ANAESTHESIA
     Dosage: 40 MG, QID
     Route: 048
  5. PARACETAMOL [Concomitant]
     Active Substance: ACETAMINOPHEN
     Dosage: 1 G, QID
     Route: 048
  6. ASPIRIN                            /00002701/ [Suspect]
     Active Substance: ASPIRIN
     Indication: PRODUCT USED FOR UNKNOWN INDICATION
     Dosage: ()
  7. ENOXAPARIN [Concomitant]
     Active Substance: ENOXAPARIN
     Indication: THROMBOSIS PROPHYLAXIS
     Dosage: 40 MG, QD
     Route: 058
  8. ENOXAPARIN [Concomitant]
     Active Substance: ENOXAPARIN
     Dosage: 40 MG, UNK
     Route: 058
  9. KETOPROFEN. [Suspect]
     Active Substance: KETOPROFEN
     Dosage: 50 MG, QID
     Route: 064
  10. MORPHINE [Suspect]
     Active Substance: MORPHINE
     Dosage: 8 MG, (2 MG, QID)
     Route: 008
  11. LIDOCAINE. [Suspect]
     Active Substance: LIDOCAINE
     Indication: EPIDURAL ANALGESIA
     Dosage: 15 ML, UNK
     Route: 065
  12. SUFENTANIL [Suspect]
     Active Substance: SUFENTANIL
     Indication: ANAESTHESIA
     Dosage: ONE SLOW AND SPLIT INJECTION OF 20ML OF A SOLUTION OF 0.25 MICROG/ML ; IN TOTAL
     Route: 008
  13. SUFENTANIL [Suspect]
     Active Substance: SUFENTANIL
     Dosage: ONE SLOW AND SPLIT INJECTION OF 20ML OF A SOLUTION OF 0.25 MICROG/ML ()
     Route: 008
  14. KETOPROFEN. [Suspect]
     Active Substance: KETOPROFEN
     Indication: ANALGESIC THERAPY
     Dosage: 50 MG, FOUR TIMES/DAY
     Route: 048
  15. NEFOPAM [Concomitant]
     Active Substance: NEFOPAM
     Indication: ANALGESIC THERAPY
     Dosage: 40 MG, QID
     Route: 065
  16. PARACETAMOL [Concomitant]
     Active Substance: ACETAMINOPHEN
     Indication: ANALGESIC THERAPY
     Dosage: 1 G, FOUR TIMES/DAY
     Route: 048
  17. PARACETAMOL [Concomitant]
     Active Substance: ACETAMINOPHEN
     Indication: PRODUCT USED FOR UNKNOWN INDICATION
     Dosage: UNK, QID
     Route: 048
  18. KETOPROFEN. [Suspect]
     Active Substance: KETOPROFEN
     Indication: ANALGESIC THERAPY
     Dosage: 50 MG, QID
     Route: 048
  19. KETOPROFEN. [Suspect]
     Active Substance: KETOPROFEN
     Indication: PRODUCT USED FOR UNKNOWN INDICATION
     Dosage: 50 MG, QID
     Route: 065
  20. SUFENTANIL [Suspect]
     Active Substance: SUFENTANIL
     Dosage: 20 ML OF A SOLUTION OF 1 MG/ML ROPIVACAINE AND 0.25 MUG/ML SUFENTANIL ()
     Route: 008
  21. PARACETAMOL [Concomitant]
     Active Substance: ACETAMINOPHEN
     Dosage: 1 G, QID
     Route: 048
  22. ADRENALINE                         /00003901/ [Concomitant]
     Active Substance: EPINEPHRINE
     Indication: EPIDURAL ANALGESIA
     Dosage: 2 MG, DAILY
     Route: 065
  23. ENOXAPARIN [Concomitant]
     Active Substance: ENOXAPARIN
     Indication: EMBOLISM VENOUS
     Dosage: 40 MG, DAILY
     Route: 058
  24. ROPIVACAINE [Suspect]
     Active Substance: ROPIVACAINE
     Indication: EPIDURAL ANALGESIA
     Dosage: 20 ML, UNK
     Route: 008
  25. LIDOCAINE. [Suspect]
     Active Substance: LIDOCAINE
     Indication: ANAESTHESIA
     Dosage: 15 ML OF LIDOCAINE 20MG/ML WITH ADRENALIN ()
     Route: 065
  26. SUFENTANIL [Suspect]
     Active Substance: SUFENTANIL
     Dosage: 5 UG, UNK
     Route: 008
  27. PARACETAMOL [Concomitant]
     Active Substance: ACETAMINOPHEN
     Dosage: 1 G, QID
     Route: 064

REACTIONS (12)
  - Gait disturbance [Recovered/Resolved]
  - Spinal epidural haemorrhage [Recovered/Resolved]
  - Paraesthesia [Recovered/Resolved]
  - Foetal heart rate abnormal [Unknown]
  - Neuropathy peripheral [Recovered/Resolved]
  - Nervous system disorder [Recovering/Resolving]
  - Epistaxis [Unknown]
  - Maternal exposure during pregnancy [Recovered/Resolved]
  - Epidural haemorrhage [Recovered/Resolved]
  - Product use issue [Unknown]
  - Peripheral nerve injury [Recovered/Resolved]
  - Epidural analgesia [Recovering/Resolving]
